FAERS Safety Report 20146921 (Version 1)
Quarter: 2021Q4

REPORT INFORMATION
  Report Type: Spontaneous
  Country: CA (occurrence: CA)
  Receive Date: 20211203
  Receipt Date: 20211203
  Transmission Date: 20220303
  Serious: Yes (Hospitalization)
  Sender: FDA-Public Use
  Company Number: CA-TEVA-2021-CA-1982893

PATIENT
  Age: 86 Year
  Sex: Male

DRUGS (1)
  1. METOPROLOL [Interacting]
     Active Substance: METOPROLOL
     Indication: Atrial fibrillation
     Route: 048

REACTIONS (6)
  - Heart rate decreased [Unknown]
  - Cardioactive drug level increased [Unknown]
  - Bradycardia [Unknown]
  - Syncope [Unknown]
  - Overdose [Unknown]
  - Drug-disease interaction [Unknown]
